FAERS Safety Report 22643220 (Version 2)
Quarter: 2023Q4

REPORT INFORMATION
  Report Type: Spontaneous
  Country: JP (occurrence: JP)
  Receive Date: 20230627
  Receipt Date: 20231005
  Transmission Date: 20240110
  Serious: Yes (Other)
  Sender: FDA-Public Use
  Company Number: JP-TAKEDA-2023TJP008294

PATIENT
  Age: 80 Year
  Sex: Male

DRUGS (6)
  1. NESINA [Suspect]
     Active Substance: ALOGLIPTIN BENZOATE
     Indication: Type 2 diabetes mellitus
     Dosage: 25 MILLIGRAM, QD
     Route: 048
     Dates: end: 20230624
  2. SYMMETREL [Suspect]
     Active Substance: AMANTADINE HYDROCHLORIDE
     Indication: Progressive supranuclear palsy
     Dosage: 200 MILLIGRAM, BID
     Route: 048
     Dates: end: 20230624
  3. HERBALS [Suspect]
     Active Substance: HERBALS
     Indication: Progressive supranuclear palsy
     Dosage: 1 DOSAGE FORM, QD
     Route: 048
     Dates: end: 20230624
  4. CARBIDOPA\LEVODOPA [Concomitant]
     Active Substance: CARBIDOPA\LEVODOPA
     Indication: Progressive supranuclear palsy
     Dosage: 600 MILLIGRAM, TID
     Route: 048
  5. DROXIDOPA [Concomitant]
     Active Substance: DROXIDOPA
     Indication: Progressive supranuclear palsy
     Dosage: 200 MILLIGRAM, BID
     Route: 048
  6. HARNAL [Concomitant]
     Active Substance: TAMSULOSIN HYDROCHLORIDE
     Indication: Benign prostatic hyperplasia
     Dosage: 0.2 MILLIGRAM, QD
     Route: 048

REACTIONS (1)
  - Erythema multiforme [Recovered/Resolved]

NARRATIVE: CASE EVENT DATE: 20230620
